FAERS Safety Report 22263298 (Version 9)
Quarter: 2023Q4

REPORT INFORMATION
  Report Type: Report from Study
  Country: US (occurrence: US)
  Receive Date: 20230428
  Receipt Date: 20231212
  Transmission Date: 20240110
  Serious: Yes (Hospitalization, Other)
  Sender: FDA-Public Use
  Company Number: US-UCBSA-2023021597

PATIENT
  Age: 66 Year
  Sex: Female
  Weight: 48 kg

DRUGS (16)
  1. BRIVARACETAM [Suspect]
     Active Substance: BRIVARACETAM
     Indication: Seizure
     Dosage: 100 MILLIGRAM, 2X/DAY (BID)
     Route: 048
     Dates: start: 20220814, end: 20230531
  2. BRIVARACETAM [Suspect]
     Active Substance: BRIVARACETAM
     Dosage: 50MG 2 TABS AM AND 1 TAB PM
     Route: 048
  3. BRIVARACETAM [Suspect]
     Active Substance: BRIVARACETAM
     Dosage: 100 MILLIGRAM, ONCE DAILY (QD), IN THE MORNING
     Route: 048
  4. BRIVARACETAM [Suspect]
     Active Substance: BRIVARACETAM
     Dosage: 50 MILLIGRAM, ONCE DAILY (QD), AT NIGHT
     Route: 048
  5. BRIVARACETAM [Suspect]
     Active Substance: BRIVARACETAM
     Dosage: 1 TABLET TWICE DAILY
     Route: 048
     Dates: start: 20230601
  6. BRIVARACETAM [Suspect]
     Active Substance: BRIVARACETAM
     Dosage: 100 MILLIGRAM, 2X/DAY (BID)
     Route: 048
  7. BRIVARACETAM [Suspect]
     Active Substance: BRIVARACETAM
     Dosage: 50 MILLIGRAM, 2X/DAY (BID)
     Route: 048
  8. VIMPAT [Concomitant]
     Active Substance: LACOSAMIDE
     Indication: Product used for unknown indication
     Dosage: 100 MILLIGRAM, 1/2 TABLET ATNIGHT
     Dates: end: 2023
  9. METOPROLOL SUCCINATE [Concomitant]
     Active Substance: METOPROLOL SUCCINATE
     Indication: Product used for unknown indication
     Dosage: 100 MILLIGRAM
  10. LISINOPRIL [Concomitant]
     Active Substance: LISINOPRIL
     Indication: Product used for unknown indication
     Dosage: 40 MILLIGRAM
  11. AMLODIPINE BESYLATE\ATORVASTATIN CALCIUM [Concomitant]
     Active Substance: AMLODIPINE BESYLATE\ATORVASTATIN CALCIUM
     Indication: Product used for unknown indication
     Dosage: 10-20 MILLIGRAM
  12. LACOSAMIDE [Concomitant]
     Active Substance: LACOSAMIDE
     Indication: Product used for unknown indication
     Dosage: 200 MILLIGRAM, 2X/DAY (BID)
  13. LACOSAMIDE [Concomitant]
     Active Substance: LACOSAMIDE
     Dosage: 100MG TABLET - 1/2 TABLET (50MG TOTAL) AT NIGHT
  14. SODIUM CHLORIDE [Concomitant]
     Active Substance: SODIUM CHLORIDE
     Indication: Product used for unknown indication
     Dosage: 1 GRAM
     Dates: start: 20220814
  15. FOLIC ACID [Concomitant]
     Active Substance: FOLIC ACID
     Indication: Product used for unknown indication
     Dosage: 1 MILLIGRAM
     Dates: start: 20220814
  16. B COMPLEX [AMINOBENZOIC ACID;BIOTIN;CALCIUM PANTOTHENATE;CHOLINE BITAR [Concomitant]
     Indication: Product used for unknown indication
     Dosage: 100 MILLIGRAM
     Dates: start: 20220814

REACTIONS (19)
  - Cerebral haemorrhage [Unknown]
  - Craniotomy [Recovered/Resolved]
  - Seizure [Recovered/Resolved]
  - Insomnia [Not Recovered/Not Resolved]
  - Pruritus [Recovered/Resolved]
  - Head injury [Recovered/Resolved]
  - Accident [Recovered/Resolved]
  - Fall [Recovered/Resolved]
  - Fatigue [Not Recovered/Not Resolved]
  - Myalgia [Unknown]
  - Hunger [Unknown]
  - Weight increased [Unknown]
  - Tremor [Unknown]
  - Flatulence [Unknown]
  - Aphasia [Unknown]
  - Treatment noncompliance [Unknown]
  - Dry mouth [Not Recovered/Not Resolved]
  - Therapy interrupted [Unknown]
  - Product availability issue [Unknown]

NARRATIVE: CASE EVENT DATE: 20220814
